FAERS Safety Report 8069722-8 (Version None)
Quarter: 2012Q1

REPORT INFORMATION
  Report Type: 
  Country: None (occurrence: None)
  Receive Date: 20120125
  Receipt Date: 20110117
  Transmission Date: 20120608
  Serious: No
  Sender: FDA-Public Use
  Company Number: US-PFIZER INC-2011US-41532

PATIENT
  Sex: Female

DRUGS (3)
  1. CALAN [Suspect]
     Indication: HYPERTENSION
     Dosage: UNK
     Dates: start: 20100304
  2. CALAN [Suspect]
     Dosage: UNK
     Dates: start: 20100903
  3. LIPITOR [Suspect]
     Indication: PRODUCT USED FOR UNKNOWN INDICATION
     Dosage: UNK
     Route: 065

REACTIONS (1)
  - MEDICATION ERROR [None]
